FAERS Safety Report 15119021 (Version 2)
Quarter: 2018Q3

REPORT INFORMATION
  Report Type: Spontaneous
  Country: US (occurrence: US)
  Receive Date: 20180709
  Receipt Date: 20180724
  Transmission Date: 20181010
  Serious: Yes (Other)
  Sender: FDA-Public Use
  Company Number: US-ROCHE-2150087

PATIENT
  Age: 63 Year
  Sex: Female

DRUGS (5)
  1. METOPROLOL. [Concomitant]
     Active Substance: METOPROLOL
     Indication: HYPERTENSION
  2. OCREVUS [Suspect]
     Active Substance: OCRELIZUMAB
     Indication: RELAPSING-REMITTING MULTIPLE SCLEROSIS
     Dosage: ^HALF DOSE^ ;ONGOING: YES
     Route: 042
     Dates: start: 201710
  3. OCREVUS [Suspect]
     Active Substance: OCRELIZUMAB
     Dosage: ^HALF DOSE^
     Route: 042
     Dates: start: 201711
  4. AMLODIPINE/OLMESARTAN MEDOXOMIL [Concomitant]
     Active Substance: AMLODIPINE\OLMESARTAN
     Indication: HYPERTENSION
  5. OCREVUS [Suspect]
     Active Substance: OCRELIZUMAB
     Route: 042
     Dates: start: 2018

REACTIONS (1)
  - Renal impairment [Unknown]

NARRATIVE: CASE EVENT DATE: 20180702
